FAERS Safety Report 15989923 (Version 2)
Quarter: 2019Q1

REPORT INFORMATION
  Report Type: Report from Study
  Country: US (occurrence: US)
  Receive Date: 20190221
  Receipt Date: 20190322
  Transmission Date: 20190418
  Serious: Yes (Hospitalization, Other)
  Sender: FDA-Public Use
  Company Number: US-ROCHE-2264002

PATIENT
  Age: 67 Year
  Sex: Female

DRUGS (1)
  1. OCREVUS [Suspect]
     Active Substance: OCRELIZUMAB
     Indication: MULTIPLE SCLEROSIS
     Dosage: ONGOING-YES? 4TH DOSE ON  07/FEB/2019
     Route: 065
     Dates: start: 20170802

REACTIONS (2)
  - Uhthoff^s phenomenon [Unknown]
  - Streptococcal urinary tract infection [Recovered/Resolved]

NARRATIVE: CASE EVENT DATE: 201812
